FAERS Safety Report 4326387-6 (Version None)
Quarter: 2004Q1

REPORT INFORMATION
  Report Type: 
  Country: None (occurrence: None)
  Receive Date: 20040330
  Receipt Date: 20040128
  Transmission Date: 20041129
  Serious: Yes (Hospitalization)
  Sender: FDA-Public Use
  Company Number: PHHO2004ES01551

PATIENT
  Age: 72 Year
  Sex: Male

DRUGS (3)
  1. EXELON [Suspect]
     Indication: DEMENTIA ALZHEIMER'S TYPE
     Dosage: 3 MG / DAY
     Route: 048
     Dates: start: 20021002, end: 20030601
  2. SERTRALINE HCL [Concomitant]
  3. BROMOCRIPTINE MESYLATE [Concomitant]

REACTIONS (4)
  - DECUBITUS ULCER [None]
  - INFECTED SKIN ULCER [None]
  - INFECTION [None]
  - PYREXIA [None]
